FAERS Safety Report 10900207 (Version 1)
Quarter: 2015Q1

REPORT INFORMATION
  Report Type: Spontaneous
  Country: NL (occurrence: NL)
  Receive Date: 20150310
  Receipt Date: 20150310
  Transmission Date: 20150721
  Serious: Yes (Hospitalization)
  Sender: FDA-Public Use
  Company Number: NL-009507513-1503NLD003825

PATIENT
  Age: 47 Year
  Sex: Female

DRUGS (10)
  1. MICROGYNON 30 [Suspect]
     Active Substance: ETHINYL ESTRADIOL\LEVONORGESTREL ACETATE
     Indication: ACNE
     Dosage: UNK
     Dates: start: 2001
  2. DESOGESTREL AND ETHINYL ESTRADIOL [Suspect]
     Active Substance: DESOGESTREL\ETHINYL ESTRADIOL
     Indication: CONTRACEPTION
  3. ANDROCUR [Suspect]
     Active Substance: CYPROTERONE ACETATE
     Indication: ACNE
     Dosage: 50 MG, UNK
     Dates: start: 1980
  4. LYNORAL [Suspect]
     Active Substance: ETHINYL ESTRADIOL
     Indication: CONTRACEPTION
  5. ANDROCUR [Suspect]
     Active Substance: CYPROTERONE ACETATE
     Indication: CONTRACEPTION
     Dosage: 100 MG, UNK
  6. DIANE 35 [Suspect]
     Active Substance: CYPROTERONE ACETATE\ETHINYL ESTRADIOL
     Indication: ACNE
     Dosage: UNK
     Dates: start: 1982, end: 1995
  7. MICROGYNON 30 [Suspect]
     Active Substance: ETHINYL ESTRADIOL\LEVONORGESTREL ACETATE
     Indication: CONTRACEPTION
  8. DESOGESTREL AND ETHINYL ESTRADIOL [Suspect]
     Active Substance: DESOGESTREL\ETHINYL ESTRADIOL
     Indication: ACNE
     Route: 048
  9. LYNORAL [Suspect]
     Active Substance: ETHINYL ESTRADIOL
     Indication: ACNE
     Dosage: UNK
     Route: 048
     Dates: start: 1980
  10. DIANE 35 [Suspect]
     Active Substance: CYPROTERONE ACETATE\ETHINYL ESTRADIOL
     Indication: CONTRACEPTION

REACTIONS (1)
  - Peliosis hepatis [Unknown]
